FAERS Safety Report 5954367-3 (Version None)
Quarter: 2008Q4

REPORT INFORMATION
  Report Type: 
  Country: None (occurrence: None)
  Receive Date: 20081112
  Receipt Date: 20081028
  Transmission Date: 20090506
  Serious: Yes (Hospitalization)
  Sender: FDA-Public Use
  Company Number: 2008S1019432

PATIENT
  Sex: Male

DRUGS (4)
  1. CYCLOSPORINE [Suspect]
     Indication: IMMUNOSUPPRESSION
  2. METHOTREXATE [Suspect]
     Indication: IMMUNOSUPPRESSION
  3. SIROLIMUS (SIROLIMUS) [Suspect]
     Indication: IMMUNOSUPPRESSION
  4. CYCLOPHOSPHAMIDE (CYCLOPHOPSPHAMIDE) [Suspect]

REACTIONS (4)
  - ACUTE GRAFT VERSUS HOST DISEASE [None]
  - BK VIRUS INFECTION [None]
  - ENCEPHALITIS VIRAL [None]
  - PNEUMONIA ASPIRATION [None]
